FAERS Safety Report 5478396-1 (Version None)
Quarter: 2007Q4

REPORT INFORMATION
  Report Type: 
  Country: None (occurrence: None)
  Receive Date: 20071005
  Receipt Date: 20071003
  Transmission Date: 20080405
  Serious: Yes (Other)
  Sender: FDA-Public Use
  Company Number: B0489858A

PATIENT
  Age: 64 Year
  Sex: Female

DRUGS (1)
  1. ADARTREL [Suspect]
     Indication: RESTLESS LEGS SYNDROME
     Route: 065
     Dates: start: 20070510, end: 20070612

REACTIONS (3)
  - ABDOMINAL DISCOMFORT [None]
  - CHEST DISCOMFORT [None]
  - RESPIRATORY DISTRESS [None]
